FAERS Safety Report 24338275 (Version 2)
Quarter: 2024Q4

REPORT INFORMATION
  Report Type: Spontaneous
  Country: AU (occurrence: AU)
  Receive Date: 20240919
  Receipt Date: 20241004
  Transmission Date: 20250114
  Serious: Yes (Other)
  Sender: TEVA
  Company Number: AU-TEVA-VS-3242682

PATIENT
  Age: 59 Year
  Sex: Female

DRUGS (5)
  1. RABEPRAZOLE [Suspect]
     Active Substance: RABEPRAZOLE
     Indication: Dysphagia
     Route: 065
  2. PREDNISOLONE [Suspect]
     Active Substance: PREDNISOLONE
     Indication: Oesophageal disorder
     Route: 065
  3. TOCILIZUMAB [Suspect]
     Active Substance: TOCILIZUMAB
     Indication: Oesophageal disorder
     Route: 058
  4. METHOTREXATE [Suspect]
     Active Substance: METHOTREXATE
     Indication: Oesophageal disorder
     Route: 065
  5. FLUTICASONE [Suspect]
     Active Substance: FLUTICASONE
     Indication: Oesophageal disorder
     Dosage: METERED DOSE INHALER
     Route: 048

REACTIONS (2)
  - Immunodeficiency [Unknown]
  - Drug ineffective [Unknown]
